FAERS Safety Report 9521504 (Version 1)
Quarter: 2013Q3

REPORT INFORMATION
  Report Type: Spontaneous
  Country: CA (occurrence: CA)
  Receive Date: 20130913
  Receipt Date: 20130913
  Transmission Date: 20140515
  Serious: Yes (Hospitalization)
  Sender: FDA-Public Use
  Company Number: CA-ASTRAZENECA-2013SE68225

PATIENT
  Age: 56 Year
  Sex: Male

DRUGS (12)
  1. SYMBICORT TURBUHALER [Suspect]
     Dosage: 200 MICROGRAM, AS REQUIRED
     Route: 055
  2. ZOMIG [Suspect]
     Route: 048
  3. ATHROMYCINE [Concomitant]
  4. AVELOX [Concomitant]
  5. BACTRIM [Concomitant]
  6. GRAVOL [Concomitant]
  7. PANCREATIC ENZYMES [Concomitant]
  8. PANTOLOC [Concomitant]
  9. PROPRANOLOL [Concomitant]
  10. VALTREX [Concomitant]
  11. WARFARIN [Concomitant]
  12. ZOPICLONE [Concomitant]

REACTIONS (1)
  - Deep vein thrombosis [Unknown]
